FAERS Safety Report 4673787-0 (Version None)
Quarter: 2005Q2

REPORT INFORMATION
  Report Type: 
  Country: None (occurrence: None)
  Receive Date: 20050523
  Receipt Date: 20040712
  Transmission Date: 20051028
  Serious: Yes (Other)
  Sender: FDA-Public Use
  Company Number: 10058004-C615419-1

PATIENT

DRUGS (2)
  1. LACTATED RINGER'S [Suspect]
     Dosage: CONTINUOUS, INTRAVENOUS
     Route: 042
  2. 18 GA. AND 20 GA. CATHETERS (MANUFACTURER UNKNOWN) [Concomitant]

REACTIONS (1)
  - INJECTION SITE IRRITATION [None]
